FAERS Safety Report 7028504-6 (Version None)
Quarter: 2010Q4

REPORT INFORMATION
  Report Type: 
  Country: None (occurrence: None)
  Receive Date: 20101001
  Receipt Date: 20101001
  Transmission Date: 20110411
  Serious: Yes (Hospitalization)
  Sender: FDA-Public Use
  Company Number: None

PATIENT
  Age: 61 Year
  Sex: Male
  Weight: 78 kg

DRUGS (1)
  1. OXYCODONE HCL [Suspect]
     Dates: start: 20100616

REACTIONS (2)
  - ACCIDENTAL OVERDOSE [None]
  - DELIRIUM [None]
